FAERS Safety Report 13982652 (Version 1)
Quarter: 2017Q3

REPORT INFORMATION
  Report Type: Spontaneous
  Country: US (occurrence: US)
  Receive Date: 20170918
  Receipt Date: 20170918
  Transmission Date: 20171128
  Serious: Yes (Disabling)
  Sender: FDA-Public Use
  Company Number: None

PATIENT
  Age: 74 Year
  Sex: Female
  Weight: 76.5 kg

DRUGS (8)
  1. METROPOLOL [Concomitant]
     Active Substance: METOPROLOL
  2. VITAMIN C [Concomitant]
     Active Substance: ASCORBIC ACID
  3. GLIPIZIDE. [Concomitant]
     Active Substance: GLIPIZIDE
  4. METFORMIN [Suspect]
     Active Substance: METFORMIN HYDROCHLORIDE
     Indication: TYPE 2 DIABETES MELLITUS
     Dosage: ?          QUANTITY:2 TABLET(S);?
     Route: 048
     Dates: start: 20070120, end: 20170710
  5. VOLTAREN [Concomitant]
     Active Substance: DICLOFENAC SODIUM
  6. ENALAPRIL [Concomitant]
     Active Substance: ENALAPRIL
  7. VITAMIN E [Concomitant]
     Active Substance: .ALPHA.-TOCOPHEROL
  8. VITAMIN D [Concomitant]
     Active Substance: CHOLECALCIFEROL

REACTIONS (9)
  - Vertigo [None]
  - Contusion [None]
  - Neuropathy peripheral [None]
  - Anaemia [None]
  - Rib fracture [None]
  - Fall [None]
  - Head injury [None]
  - Fatigue [None]
  - Balance disorder [None]

NARRATIVE: CASE EVENT DATE: 20170710
